FAERS Safety Report 9033762 (Version 2)
Quarter: 2013Q1

REPORT INFORMATION
  Report Type: Spontaneous
  Country: US (occurrence: US)
  Receive Date: 20130128
  Receipt Date: 20130208
  Transmission Date: 20140127
  Serious: Yes (Other)
  Sender: FDA-Public Use
  Company Number: US-AMGEN-USASP2012075210

PATIENT
  Age: 44 Year
  Sex: Male
  Weight: 126.98 kg

DRUGS (1)
  1. ENBREL [Suspect]
     Indication: PSORIASIS
     Dosage: 50 MG, QWK
     Dates: start: 20120531, end: 201211

REACTIONS (4)
  - Infection [Recovered/Resolved]
  - Nail avulsion [Recovered/Resolved]
  - Varicose vein [Recovered/Resolved]
  - Erythema [Recovered/Resolved]
